FAERS Safety Report 15867757 (Version 5)
Quarter: 2019Q2

REPORT INFORMATION
  Report Type: Report from Study
  Country: CO (occurrence: CO)
  Receive Date: 20190125
  Receipt Date: 20190603
  Transmission Date: 20190711
  Serious: Yes (Hospitalization, Other)
  Sender: FDA-Public Use
  Company Number: CO-JNJFOC-20190125605

PATIENT
  Age: 38 Year
  Sex: Female
  Weight: 76 kg

DRUGS (1)
  1. SIMPONI [Suspect]
     Active Substance: GOLIMUMAB
     Indication: RHEUMATOID ARTHRITIS
     Route: 058
     Dates: start: 20170705, end: 20180702

REACTIONS (6)
  - Fall [Recovering/Resolving]
  - Device breakage [Not Recovered/Not Resolved]
  - Necrosis [Not Recovered/Not Resolved]
  - Femur fracture [Recovering/Resolving]
  - Postoperative wound infection [Recovering/Resolving]
  - Rheumatoid arthritis [Not Recovered/Not Resolved]

NARRATIVE: CASE EVENT DATE: 20181201
